FAERS Safety Report 13147866 (Version 1)
Quarter: 2017Q1

REPORT INFORMATION
  Report Type: Spontaneous
  Country: US (occurrence: US)
  Receive Date: 20170125
  Receipt Date: 20170125
  Transmission Date: 20170428
  Serious: No
  Sender: FDA-Public Use
  Company Number: US-ELI_LILLY_AND_COMPANY-US201701008397

PATIENT

DRUGS (2)
  1. FORTEO [Suspect]
     Active Substance: TERIPARATIDE
     Indication: OSTEOPENIA
     Dosage: UNK, UNKNOWN
     Route: 065
     Dates: start: 201611
  2. FORTEO [Suspect]
     Active Substance: TERIPARATIDE
     Indication: PELVIC FRACTURE

REACTIONS (3)
  - Injection site pain [Unknown]
  - Incorrect product storage [Unknown]
  - Off label use [Unknown]

NARRATIVE: CASE EVENT DATE: 20170120
